FAERS Safety Report 4705973-5 (Version None)
Quarter: 2005Q2

REPORT INFORMATION
  Report Type: 
  Country: None (occurrence: None)
  Receive Date: 20050629
  Receipt Date: 20050620
  Transmission Date: 20051028
  Serious: Yes (Hospitalization)
  Sender: FDA-Public Use
  Company Number: US-2005-005333

PATIENT
  Age: 49 Year
  Sex: Female
  Weight: 62.6 kg

DRUGS (5)
  1. BETASERON [Suspect]
     Indication: RELAPSING-REMITTING MULTIPLE SCLEROSIS
     Dosage: 8 MIU, EVERY 2D; SUBCUTANEOUS
     Route: 058
     Dates: start: 20000706
  2. COUMADIN [Concomitant]
  3. TENORMIN [Concomitant]
  4. LANOXIN [Concomitant]
  5. ... [Concomitant]

REACTIONS (11)
  - ASTHENIA [None]
  - ATRIAL FIBRILLATION [None]
  - CHEST PAIN [None]
  - CHILLS [None]
  - DIFFICULTY IN WALKING [None]
  - DIPLOPIA [None]
  - HEART RATE INCREASED [None]
  - HYPERHIDROSIS [None]
  - INFLUENZA LIKE ILLNESS [None]
  - PYREXIA [None]
  - THERAPY NON-RESPONDER [None]
